FAERS Safety Report 6591423-3 (Version None)
Quarter: 2010Q1

REPORT INFORMATION
  Report Type: 
  Country: None (occurrence: None)
  Receive Date: 20100219
  Receipt Date: 20100210
  Transmission Date: 20100710
  Serious: Yes (Hospitalization)
  Sender: FDA-Public Use
  Company Number: US-AMGEN-QUU390054

PATIENT
  Sex: Male
  Weight: 85.8 kg

DRUGS (2)
  1. ENBREL [Suspect]
     Indication: RHEUMATOID ARTHRITIS
     Route: 058
     Dates: start: 20050909
  2. METHOTREXATE [Concomitant]
     Route: 048
     Dates: start: 20040101

REACTIONS (3)
  - ABDOMINAL HERNIA [None]
  - AORTIC ANEURYSM [None]
  - PULMONARY EMBOLISM [None]
